FAERS Safety Report 17775569 (Version 1)
Quarter: 2020Q2

REPORT INFORMATION
  Report Type: Report from Study
  Country: LB (occurrence: LB)
  Receive Date: 20200513
  Receipt Date: 20200513
  Transmission Date: 20200714
  Serious: Yes (Other)
  Sender: FDA-Public Use
  Company Number: LB-ROCHE-2561422

PATIENT
  Sex: Female

DRUGS (1)
  1. TECENTRIQ [Suspect]
     Active Substance: ATEZOLIZUMAB
     Indication: SMALL CELL LUNG CANCER
     Dosage: SECOND DOSE ON 17/JUL/2019, THIRD ON 06/AUG/2019, FOURTH ON 27/AUG/2019, FIFTH DOSE ON 17/SEP/2019,
     Route: 042
     Dates: start: 20190626, end: 20200121

REACTIONS (3)
  - Hepatotoxicity [Unknown]
  - Vomiting [Unknown]
  - Nausea [Unknown]
